FAERS Safety Report 6218141-5 (Version None)
Quarter: 2009Q2

REPORT INFORMATION
  Report Type: 
  Country: None (occurrence: None)
  Receive Date: 20090608
  Receipt Date: 20090528
  Transmission Date: 20091009
  Serious: Yes (Other)
  Sender: FDA-Public Use
  Company Number: PHHY2009VE21442

PATIENT
  Sex: Female

DRUGS (2)
  1. ACLASTA [Suspect]
     Indication: OSTEOPOROSIS
     Dosage: 5 MG, ANNUALLY
     Route: 042
     Dates: start: 20090211
  2. CALCIO [Concomitant]
     Indication: OSTEOPOROSIS
     Dosage: ONCE A DAY
     Route: 048

REACTIONS (2)
  - FALL [None]
  - HAND FRACTURE [None]
